FAERS Safety Report 6778864-6 (Version None)
Quarter: 2010Q2

REPORT INFORMATION
  Report Type: 
  Country: None (occurrence: None)
  Receive Date: 20100618
  Receipt Date: 20100609
  Transmission Date: 20101027
  Serious: Yes (Hospitalization)
  Sender: FDA-Public Use
  Company Number: JP-JNJFOC-20100300943

PATIENT
  Sex: Female
  Weight: 66 kg

DRUGS (15)
  1. DOXIL [Suspect]
     Indication: OVARIAN CANCER RECURRENT
     Dosage: COURSE 2
     Route: 042
  2. DOXIL [Suspect]
     Dosage: COURSE 1
     Route: 042
  3. DECADRON [Concomitant]
     Indication: PROPHYLAXIS
     Route: 042
  4. GRANISETRON [Concomitant]
     Indication: PROPHYLAXIS
     Route: 042
  5. NEUROVITAN [Concomitant]
     Indication: PROPHYLAXIS
     Route: 048
  6. ZOFRAN [Concomitant]
     Indication: PROPHYLAXIS
     Route: 048
  7. PURSENNID [Concomitant]
     Route: 048
  8. MAGLAX [Concomitant]
     Route: 048
  9. VOLTAREN [Concomitant]
     Route: 054
  10. UNASYN [Concomitant]
     Route: 042
  11. SOLUTIO G [Concomitant]
     Route: 042
  12. SOLUTIO G [Concomitant]
     Route: 042
  13. SOLDEM 3A [Concomitant]
     Route: 042
  14. SOLDEM 3A [Concomitant]
     Route: 042
  15. VITAMEDIN [Concomitant]
     Route: 042

REACTIONS (5)
  - C-REACTIVE PROTEIN INCREASED [None]
  - DIARRHOEA [None]
  - PYREXIA [None]
  - VOMITING [None]
  - WHITE BLOOD CELL COUNT DECREASED [None]
